FAERS Safety Report 9241076 (Version 1)
Quarter: 2013Q2

REPORT INFORMATION
  Report Type: Spontaneous
  Country: US (occurrence: None)
  Receive Date: 20130418
  Receipt Date: 20130418
  Transmission Date: 20140414
  Serious: Yes (Life-Threatening)
  Sender: FDA-Public Use
  Company Number: None

PATIENT
  Age: 72 Year
  Sex: Female
  Weight: 72.58 kg

DRUGS (2)
  1. PROPARACAINE [Suspect]
     Indication: OPHTHALMOLOGICAL EXAMINATION
     Dosage: POURED IN EYE AREA LIBERALLY - ONE TIME, BUT SHOOK ALL ONTO MY FACE
     Route: 047
     Dates: start: 20130415, end: 20130415
  2. PHENYLEPHRINE [Suspect]
     Indication: OPHTHALMOLOGICAL EXAMINATION
     Dates: start: 20130415, end: 20130415

REACTIONS (14)
  - Gait disturbance [None]
  - Anxiety [None]
  - Paraesthesia [None]
  - Disturbance in attention [None]
  - Hypoaesthesia [None]
  - Fatigue [None]
  - Feeling abnormal [None]
  - Chest pain [None]
  - Pain in extremity [None]
  - Overdose [None]
  - Vasoconstriction [None]
  - Pain in extremity [None]
  - Blood pressure abnormal [None]
  - Sensory disturbance [None]
